FAERS Safety Report 11147943 (Version 1)
Quarter: 2015Q2

REPORT INFORMATION
  Report Type: Spontaneous
  Country: BR (occurrence: BR)
  Receive Date: 20150529
  Receipt Date: 20150529
  Transmission Date: 20150821
  Serious: Yes (Hospitalization, Other)
  Sender: FDA-Public Use
  Company Number: BR-ASTRAZENECA-2015SE51716

PATIENT
  Age: 19441 Day
  Sex: Male
  Weight: 79 kg

DRUGS (8)
  1. CRESTOR [Suspect]
     Active Substance: ROSUVASTATIN CALCIUM
     Indication: BLOOD CHOLESTEROL ABNORMAL
     Route: 048
     Dates: start: 20150321
  2. SOMALGIN CARDIO [Concomitant]
     Active Substance: ASPIRIN\DIHYDROXYALUMINUM AMINOACETATE ANHYDROUS\MAGNESIUM CARBONATE
  3. SELOZOK [Suspect]
     Active Substance: METOPROLOL SUCCINATE
     Route: 048
  4. BRILINTA [Suspect]
     Active Substance: TICAGRELOR
     Indication: CARDIOVASCULAR EVENT PROPHYLAXIS
     Route: 048
     Dates: start: 20150521
  5. DEPRENYL [Concomitant]
     Active Substance: DEPRENYL
  6. CRESTOR [Suspect]
     Active Substance: ROSUVASTATIN CALCIUM
     Indication: BLOOD CHOLESTEROL ABNORMAL
     Route: 048
     Dates: start: 2011, end: 201503
  7. BRILINTA [Suspect]
     Active Substance: TICAGRELOR
     Indication: CARDIOVASCULAR EVENT PROPHYLAXIS
     Route: 048
     Dates: start: 20150523
  8. ALLOPURINOL. [Concomitant]
     Active Substance: ALLOPURINOL
     Indication: BLOOD URIC ACID INCREASED

REACTIONS (3)
  - Myocardial infarction [Recovered/Resolved]
  - Weight decreased [Not Recovered/Not Resolved]
  - Off label use [Unknown]

NARRATIVE: CASE EVENT DATE: 20150318
